FAERS Safety Report 9388856 (Version 2)
Quarter: 2013Q3

REPORT INFORMATION
  Report Type: Spontaneous
  Country: JP (occurrence: JP)
  Receive Date: 20130708
  Receipt Date: 20130719
  Transmission Date: 20140515
  Serious: Yes (Disabling)
  Sender: FDA-Public Use
  Company Number: JP-ABBOTT-13P-087-1114852-00

PATIENT
  Age: 51 Year
  Sex: Female

DRUGS (2)
  1. LEUPLIN FOR INJECTION KIT 1.88 [Suspect]
     Indication: ANAEMIA
     Route: 058
     Dates: start: 20130301
  2. LEUPLIN FOR INJECTION KIT 1.88 [Suspect]
     Indication: UTERINE LEIOMYOMA

REACTIONS (1)
  - Carpal tunnel syndrome [Unknown]
